FAERS Safety Report 5915508-7 (Version None)
Quarter: 2008Q4

REPORT INFORMATION
  Report Type: 
  Country: None (occurrence: None)
  Receive Date: 20081010
  Receipt Date: 20080930
  Transmission Date: 20090506
  Serious: Yes (Other)
  Sender: FDA-Public Use
  Company Number: BR-PFIZER INC-2007101832

PATIENT
  Sex: Female
  Weight: 66 kg

DRUGS (6)
  1. CHANTIX [Suspect]
     Indication: SMOKING CESSATION THERAPY
     Route: 048
     Dates: start: 20071119
  2. ALL OTHER THERAPEUTIC PRODUCTS [Suspect]
     Indication: ASTHMA
  3. RIVOTRIL [Concomitant]
     Dosage: DAILY DOSE:2MG
     Route: 048
     Dates: start: 20020101
  4. FORASEQ [Concomitant]
     Dosage: DAILY DOSE:400MG
     Dates: start: 20050101
  5. COMBIVENT [Concomitant]
     Dates: start: 20030101
  6. DRUG, UNSPECIFIED [Concomitant]

REACTIONS (4)
  - ANXIETY [None]
  - BENIGN HEPATIC NEOPLASM [None]
  - DEPRESSION [None]
  - EMPHYSEMA [None]
